FAERS Safety Report 5141747-1 (Version None)
Quarter: 2006Q4

REPORT INFORMATION
  Report Type: 
  Country: None (occurrence: None)
  Receive Date: 20061027
  Receipt Date: 20061012
  Transmission Date: 20070319
  Serious: Yes (Death)
  Sender: FDA-Public Use
  Company Number: DE200610002415

PATIENT
  Age: 74 Year
  Sex: Male

DRUGS (12)
  1. XIGRIS [Suspect]
     Indication: SEPSIS
     Dosage: 24 UNK UNK INTRAVENOUS
     Route: 042
     Dates: start: 20060928, end: 20061002
  2. HEPARIN [Concomitant]
  3. DORMICUM  (NITRAZEPAM) [Concomitant]
  4. NOREPINEPHRINE BITARTRATE [Concomitant]
  5. SUFENTA (SUFENTAMIL CITRATE) [Concomitant]
  6. ACTRAPID HUMAN (INSULIN HUMAN) [Concomitant]
  7. POTASSIUM ACETATE [Concomitant]
  8. TAZOBAC (PIPERACILLIN SODIUM, TAZOBACTAM SODIUM) [Concomitant]
  9. ACETYLCYSTEINE [Concomitant]
  10. AMBROXOL [Concomitant]
  11. PANTOZOL /GFR/ (PANTOPRAZOLE SODIUM) [Concomitant]
  12. KONAKION /GFR/ (PHYTOMENADIONE) [Concomitant]

REACTIONS (1)
  - DEATH [None]
